FAERS Safety Report 13668340 (Version 1)
Quarter: 2017Q2

REPORT INFORMATION
  Report Type: Spontaneous
  Country: US (occurrence: US)
  Receive Date: 20170619
  Receipt Date: 20170619
  Transmission Date: 20170830
  Serious: Yes (Hospitalization, Disabling)
  Sender: FDA-Public Use
  Company Number: None

PATIENT
  Age: 44 Year
  Sex: Male
  Weight: 65.25 kg

DRUGS (2)
  1. LORAZEPAM. [Suspect]
     Active Substance: LORAZEPAM
     Indication: DRUG WITHDRAWAL CONVULSIONS
     Dates: start: 20160201, end: 20160805
  2. DIAZEPAM. [Suspect]
     Active Substance: DIAZEPAM
     Indication: NEURALGIA
     Dates: start: 20120613, end: 20151221

REACTIONS (12)
  - Learning disorder [None]
  - Withdrawal syndrome [None]
  - Anxiety [None]
  - Agoraphobia [None]
  - Heart rate increased [None]
  - Depression [None]
  - Hypoaesthesia [None]
  - Fatigue [None]
  - Chronic fatigue syndrome [None]
  - Pyrexia [None]
  - Suicidal ideation [None]
  - Neuralgia [None]

NARRATIVE: CASE EVENT DATE: 20160113
